FAERS Safety Report 19013101 (Version 1)
Quarter: 2021Q1

REPORT INFORMATION
  Report Type: Spontaneous
  Country: US (occurrence: US)
  Receive Date: 20210316
  Receipt Date: 20210316
  Transmission Date: 20210420
  Serious: No
  Sender: FDA-Public Use
  Company Number: US-FDC LIMITED-2020RIS00387

PATIENT
  Age: 66 Year
  Sex: Female
  Weight: 54.42 kg

DRUGS (2)
  1. OFLOXACIN. [Suspect]
     Active Substance: OFLOXACIN
     Indication: CORNEAL DISORDER
     Dosage: 1 DROP, 4X/DAY (EVERY 6 HOURS) INTO RIGHT EYE
     Route: 047
     Dates: start: 20200826
  2. OFLOXACIN. [Suspect]
     Active Substance: OFLOXACIN
     Indication: KERATOPLASTY

REACTIONS (3)
  - Corneal oedema [Not Recovered/Not Resolved]
  - Visual impairment [Not Recovered/Not Resolved]
  - Vision blurred [Not Recovered/Not Resolved]

NARRATIVE: CASE EVENT DATE: 20200830
